FAERS Safety Report 4778570-3 (Version None)
Quarter: 2005Q3

REPORT INFORMATION
  Report Type: 
  Country: None (occurrence: None)
  Receive Date: 20050926
  Receipt Date: 20050915
  Transmission Date: 20060218
  Serious: Yes (Hospitalization)
  Sender: FDA-Public Use
  Company Number: US-MERCK-0509USA02533

PATIENT
  Sex: Male
  Weight: 66 kg

DRUGS (3)
  1. VIOXX [Suspect]
     Indication: ARTHRITIS
     Route: 048
     Dates: start: 20030201, end: 20040101
  2. DOXAZOSIN MESYLATE [Concomitant]
     Route: 065
  3. [THERAPY UNSPECIFIED] [Concomitant]
     Route: 065

REACTIONS (4)
  - DYSPNOEA [None]
  - GASTRIC DISORDER [None]
  - GASTRIC OPERATION [None]
  - RENAL DISORDER [None]
